FAERS Safety Report 9595014 (Version 1)
Quarter: 2013Q4

REPORT INFORMATION
  Report Type: Spontaneous
  Country: US (occurrence: None)
  Receive Date: 20131002
  Receipt Date: 20131002
  Transmission Date: 20140711
  Serious: Yes (Life-Threatening)
  Sender: FDA-Public Use
  Company Number: AUR-APL-2013-08093

PATIENT
  Age: 10 Year
  Sex: Female

DRUGS (9)
  1. LEVETIRACETAM (LEVETIRACETAM) [Suspect]
     Indication: STATUS EPILEPTICUS
  2. SEMISODIUM VALPROATE [Suspect]
     Dosage: 4000 MG, 1 D
  3. FOSPHENYTOIN SODIUM (FOSPHENYTOIN SODIUM) [Suspect]
     Dosage: UNKNOWN
  4. FOSPHENYTOIN SODIUM (FOSPHENYTOIN SODIUM) [Suspect]
     Dosage: UNKNOWN
  5. LORAZEPAM (LORAZEPAM) [Suspect]
     Dosage: UNKNOWN
  6. LORAZEPAM (LORAZEPAM) [Suspect]
     Dosage: UNKNOWN
  7. MIDAZOLAM (MIDAZOLAM) [Suspect]
     Dosage: 0.2 MG/KG/ H, 8 MG/ UNKNOWN
  8. PHENOBARBITAL (PHENOBARBITAL) [Suspect]
     Dosage: PSL=42 UG/ML,  (280 MG, 1 D), UNKNOWN
  9. PENTOBARBITAL [Suspect]
     Dosage: 3 MG/KG/H, UNKNOWN

REACTIONS (7)
  - Fatigue [None]
  - Abdominal pain [None]
  - Headache [None]
  - Convulsion [None]
  - Haemodynamic instability [None]
  - Hypothermia [None]
  - Hypokalaemia [None]
